FAERS Safety Report 4930968-6 (Version None)
Quarter: 2006Q1

REPORT INFORMATION
  Report Type: 
  Country: None (occurrence: None)
  Receive Date: 20060227
  Receipt Date: 20060209
  Transmission Date: 20060701
  Serious: Yes (Other)
  Sender: FDA-Public Use
  Company Number: 2006CL000646

PATIENT
  Age: 53 Year
  Sex: Male
  Weight: 144.6975 kg

DRUGS (9)
  1. SYMLIN [Suspect]
     Indication: DIABETES MELLITUS NON-INSULIN-DEPENDENT
     Dosage: 30 MCG;TID;SC
     Route: 058
     Dates: start: 20060125
  2. MERIDIA [Concomitant]
  3. FUROSEMIDE [Concomitant]
  4. ENALAPRIL MALEATE [Concomitant]
  5. POTASSIUM [Concomitant]
  6. NOVOLOG [Concomitant]
  7. LANTUS [Concomitant]
  8. METFORMIN [Concomitant]
  9. TRICOR [Concomitant]

REACTIONS (8)
  - COLD SWEAT [None]
  - CONFUSIONAL STATE [None]
  - FALL [None]
  - HYPOGLYCAEMIA [None]
  - MALAISE [None]
  - NAUSEA [None]
  - PERIPHERAL COLDNESS [None]
  - TREATMENT NONCOMPLIANCE [None]
